FAERS Safety Report 4539829-8 (Version None)
Quarter: 2004Q4

REPORT INFORMATION
  Report Type: 
  Country: None (occurrence: None)
  Receive Date: 20041228
  Receipt Date: 20041105
  Transmission Date: 20050328
  Serious: Yes (Hospitalization, Other)
  Sender: FDA-Public Use
  Company Number: BE-BRISTOL-MYERS SQUIBB COMPANY-12759270

PATIENT
  Age: 62 Year
  Sex: Male

DRUGS (5)
  1. GLUCOVANCE [Suspect]
     Indication: DIABETES MELLITUS NON-INSULIN-DEPENDENT
     Route: 048
     Dates: start: 20040225, end: 20040228
  2. ZESTORETIC [Concomitant]
  3. ZESTRIL [Concomitant]
  4. ASAFLOW [Concomitant]
  5. TENORMIN [Concomitant]

REACTIONS (1)
  - HYPOGLYCAEMIC COMA [None]
